FAERS Safety Report 14561440 (Version 1)
Quarter: 2018Q1

REPORT INFORMATION
  Report Type: Spontaneous
  Country: US (occurrence: US)
  Receive Date: 20180222
  Receipt Date: 20180222
  Transmission Date: 20180509
  Serious: No
  Sender: FDA-Public Use
  Company Number: US-ASTRAZENECA-2018SE19968

PATIENT
  Age: 63 Year
  Sex: Female
  Weight: 103.9 kg

DRUGS (3)
  1. BYETTA [Suspect]
     Active Substance: EXENATIDE
     Indication: TYPE 2 DIABETES MELLITUS
     Route: 058
  2. BYETTA [Suspect]
     Active Substance: EXENATIDE
     Indication: TYPE 2 DIABETES MELLITUS
     Route: 058
  3. BYETTA [Suspect]
     Active Substance: EXENATIDE
     Indication: TYPE 2 DIABETES MELLITUS
     Route: 058
     Dates: start: 2016, end: 2016

REACTIONS (10)
  - Hyperchlorhydria [Recovered/Resolved]
  - Weight increased [Unknown]
  - Nausea [Recovered/Resolved]
  - Memory impairment [Unknown]
  - Malaise [Recovered/Resolved]
  - Circumstance or information capable of leading to medication error [Unknown]
  - Drug dose omission [Unknown]
  - Blood glucose increased [Unknown]
  - Intentional product misuse [Unknown]
  - Hypertension [Unknown]

NARRATIVE: CASE EVENT DATE: 2017
